FAERS Safety Report 4734110-6 (Version None)
Quarter: 2005Q3

REPORT INFORMATION
  Report Type: 
  Country: None (occurrence: None)
  Receive Date: 20050804
  Receipt Date: 20050726
  Transmission Date: 20060218
  Serious: Yes (Hospitalization)
  Sender: FDA-Public Use
  Company Number: FR-JNJFOC-20050305151

PATIENT
  Age: 43 Year
  Sex: Male
  Weight: 67 kg

DRUGS (4)
  1. REMICADE [Suspect]
     Indication: ANKYLOSING SPONDYLITIS
     Dosage: 7 MONTHS.
     Route: 042
  2. TAHOR [Concomitant]
     Route: 048
  3. CELEBREX [Concomitant]
  4. NOVATREX [Concomitant]
     Route: 048

REACTIONS (1)
  - MYOCARDITIS [None]
